FAERS Safety Report 6557018-2 (Version None)
Quarter: 2010Q1

REPORT INFORMATION
  Report Type: 
  Country: None (occurrence: None)
  Receive Date: 20100128
  Receipt Date: 20100122
  Transmission Date: 20100710
  Serious: Yes (Other)
  Sender: FDA-Public Use
  Company Number: US-GENENTECH-296196

PATIENT
  Sex: Male
  Weight: 36.4 kg

DRUGS (3)
  1. NUTROPIN AQ [Suspect]
     Indication: GROWTH HORMONE DEFICIENCY
     Dosage: 1.4 MG, QD
     Route: 058
     Dates: start: 20090212, end: 20091210
  2. NUTROPIN AQ [Suspect]
     Indication: EMPTY SELLA SYNDROME
     Dosage: 2.0 MG, QD
     Route: 058
     Dates: start: 20090601
  3. NUTROPIN AQ [Suspect]
     Dosage: 2.4 MG, QD
     Route: 058
     Dates: start: 20091008, end: 20091210

REACTIONS (2)
  - ARTERIOVENOUS MALFORMATION [None]
  - HAEMANGIOMA [None]
